FAERS Safety Report 6132153-1 (Version None)
Quarter: 2009Q1

REPORT INFORMATION
  Report Type: 
  Country: None (occurrence: None)
  Receive Date: 20090325
  Receipt Date: 20090318
  Transmission Date: 20090719
  Serious: Yes (Other)
  Sender: FDA-Public Use
  Company Number: B0558448A

PATIENT
  Age: 7 Year
  Sex: Female

DRUGS (5)
  1. RELENZA [Suspect]
     Indication: INFLUENZA
     Dosage: 10MG PER DAY
     Route: 055
     Dates: start: 20090202, end: 20090202
  2. HUSCODE [Concomitant]
     Indication: INFLUENZA
     Dosage: 2.7ML THREE TIMES PER DAY
     Route: 048
     Dates: start: 20090202, end: 20090206
  3. PERIACTIN [Concomitant]
     Indication: INFLUENZA
     Dosage: 2.7ML THREE TIMES PER DAY
     Route: 048
     Dates: start: 20090202, end: 20090206
  4. ACETAMINOPHEN [Concomitant]
     Indication: DRUG USE FOR UNKNOWN INDICATION
     Route: 065
  5. SAWATENE [Concomitant]
     Indication: INFLUENZA
     Dosage: 2.7ML THREE TIMES PER DAY
     Route: 048
     Dates: start: 20090202, end: 20090206

REACTIONS (1)
  - ABNORMAL BEHAVIOUR [None]
